FAERS Safety Report 16343720 (Version 1)
Quarter: 2019Q2

REPORT INFORMATION
  Report Type: Spontaneous
  Country: US (occurrence: US)
  Receive Date: 20190522
  Receipt Date: 20190522
  Transmission Date: 20190711
  Serious: No
  Sender: FDA-Public Use
  Company Number: US-PFIZER INC-2019215293

PATIENT
  Age: 63 Year
  Sex: Female
  Weight: 40.82 kg

DRUGS (3)
  1. DETROL [Suspect]
     Active Substance: TOLTERODINE TARTRATE
     Indication: PAIN
     Dosage: 2 MG, 2X/DAY
     Route: 048
     Dates: start: 2018
  2. DETROL [Suspect]
     Active Substance: TOLTERODINE TARTRATE
     Indication: BLADDER DISORDER
     Dosage: UNK, 1X/DAY
  3. DETROL [Suspect]
     Active Substance: TOLTERODINE TARTRATE
     Dosage: UNK (HALF A TABLET A DAY)

REACTIONS (4)
  - Therapeutic response unexpected [Unknown]
  - Intentional product misuse [Not Recovered/Not Resolved]
  - Drug ineffective [Unknown]
  - Pre-existing condition improved [Unknown]

NARRATIVE: CASE EVENT DATE: 2018
